FAERS Safety Report 9026249 (Version 1)
Quarter: 2013Q1

REPORT INFORMATION
  Report Type: Spontaneous
  Country: BR (occurrence: BR)
  Receive Date: 20130123
  Receipt Date: 20130123
  Transmission Date: 20140127
  Serious: Yes (Death)
  Sender: FDA-Public Use
  Company Number: PHHY2013BR005861

PATIENT
  Sex: Male
  Weight: 68 kg

DRUGS (5)
  1. DIOVAN [Suspect]
     Indication: BLOOD PRESSURE ABNORMAL
     Dosage: 0.5 DF, QD (320 MG)
     Dates: start: 20050304
  2. SEROQUEL [Concomitant]
     Indication: FEELING OF RELAXATION
     Dosage: 0.5 DF, DAILY
     Route: 048
  3. AMARYL [Concomitant]
     Indication: DIABETES MELLITUS
     Dosage: 1 DF, DAILY
     Route: 048
  4. EXELON [Concomitant]
     Indication: DEMENTIA ALZHEIMER^S TYPE
     Dosage: 2 DF, DAILY
     Route: 048
  5. ALOIS [Concomitant]
     Indication: DEMENTIA ALZHEIMER^S TYPE
     Dosage: 1 DF, DAILY
     Route: 048

REACTIONS (2)
  - Lung neoplasm malignant [Fatal]
  - Wrong technique in drug usage process [Unknown]
